FAERS Safety Report 18358742 (Version 1)
Quarter: 2020Q4

REPORT INFORMATION
  Report Type: Spontaneous
  Country: ES (occurrence: ES)
  Receive Date: 20201008
  Receipt Date: 20201008
  Transmission Date: 20210114
  Serious: Yes (Other)
  Sender: FDA-Public Use
  Company Number: ES-TEVA-2020-ES-1835536

PATIENT
  Age: 87 Year
  Sex: Female

DRUGS (8)
  1. MORFINA 10 MG 12 COMPRIMIDOS [Interacting]
     Active Substance: MORPHINE
     Indication: PLASMA CELL MYELOMA
     Dosage: UNIT DOSE : 10 MG
     Route: 048
     Dates: start: 20200825, end: 20200915
  2. NOVORAPID FLEXPEN 100 U/ML, SOLUCION INYECTABLE EN UNA PLUMA PRECARGAD [Concomitant]
     Indication: TYPE 2 DIABETES MELLITUS
     Dosage: UNIT DOSE : 6 IU
     Route: 058
  3. FENTANYL TRANSDERMAL SYSTEM [Suspect]
     Active Substance: FENTANYL
     Indication: PRODUCT USED FOR UNKNOWN INDICATION
     Dosage: UNIT DOSE : 1 DOSAGE FORMS
     Route: 062
     Dates: start: 20200912
  4. TEGRETOL [Concomitant]
     Active Substance: CARBAMAZEPINE
     Indication: TRIGEMINAL NEURALGIA
     Dosage: UNIT DOSE : 200 MG
     Route: 048
     Dates: start: 20190129
  5. ALOPURINOL 100 MG 100 COMPRIMIDOS [Concomitant]
     Indication: PLASMA CELL MYELOMA
     Dosage: UNIT DOSE : 100 MG
     Route: 048
     Dates: start: 20181201
  6. LORAZEPAM 1 MG 50 COMPRIMIDOS [Concomitant]
     Active Substance: LORAZEPAM
     Indication: INSOMNIA
     Dosage: UNIT DOSE : 1 MG
     Route: 048
     Dates: start: 20200429
  7. DEXAMETASONA 4 MG 30 COMPRIMIDOS [Concomitant]
     Indication: OSTEOARTHRITIS
     Dosage: UNIT DOSE  : 4 MG
     Route: 048
     Dates: start: 20190418
  8. LANTUS SOLOSTAR 100 UNIDADES/ML SOLUCION INYECTABLE EN PLUMA PRECARGAD [Concomitant]
     Indication: TYPE 2 DIABETES MELLITUS
     Dosage: UNIT DOSE : 56 IU
     Route: 058
     Dates: start: 20080306

REACTIONS (3)
  - Agitation [Not Recovered/Not Resolved]
  - Disorientation [Not Recovered/Not Resolved]
  - Drug interaction [Unknown]

NARRATIVE: CASE EVENT DATE: 20200914
